FAERS Safety Report 21675170 (Version 4)
Quarter: 2023Q2

REPORT INFORMATION
  Report Type: Report from Study
  Country: US (occurrence: US)
  Receive Date: 20221202
  Receipt Date: 20230509
  Transmission Date: 20230722
  Serious: Yes (Other)
  Sender: FDA-Public Use
  Company Number: US-002147023-NVSC2022US279908

PATIENT
  Sex: Male

DRUGS (2)
  1. ENTRESTO [Suspect]
     Active Substance: SACUBITRIL\VALSARTAN
     Indication: Cardiac failure
     Dosage: 1 DOSAGE FORM, BID
     Route: 048
  2. ENTRESTO [Suspect]
     Active Substance: SACUBITRIL\VALSARTAN
     Dosage: 24/26MG EVERY OTHER DAY BID
     Route: 048

REACTIONS (6)
  - Transient ischaemic attack [Unknown]
  - Blood glucose abnormal [Unknown]
  - Arthralgia [Unknown]
  - Decreased activity [Unknown]
  - Hypotension [Unknown]
  - Off label use [Unknown]
